FAERS Safety Report 7002777-8 (Version None)
Quarter: 2010Q3

REPORT INFORMATION
  Report Type: 
  Country: None (occurrence: None)
  Receive Date: 20100920
  Receipt Date: 20100119
  Transmission Date: 20110219
  Serious: Yes (Other)
  Sender: FDA-Public Use
  Company Number: US-ASTRAZENECA-2010SE02337

PATIENT
  Sex: Female
  Weight: 59 kg

DRUGS (6)
  1. SEROQUEL XR [Suspect]
     Indication: SCHIZOPHRENIA
     Route: 048
     Dates: start: 20071227
  2. TETRACYCLINE [Concomitant]
  3. DEXADRINE [Concomitant]
  4. DEPAKOTE [Concomitant]
  5. ESKALITH [Concomitant]
  6. SOFRAS [Concomitant]

REACTIONS (1)
  - CATARACT [None]
